FAERS Safety Report 7260684-X (Version None)
Quarter: 2011Q1

REPORT INFORMATION
  Report Type: 
  Country: None (occurrence: None)
  Receive Date: 20110130
  Receipt Date: 20101111
  Transmission Date: 20110831
  Serious: No
  Sender: FDA-Public Use
  Company Number: US-ABBOTT-10P-163-0684858-00

PATIENT
  Age: 64 Year
  Sex: Female

DRUGS (22)
  1. EFFEXOR [Concomitant]
     Indication: DEPRESSION
  2. METOPROLOL [Concomitant]
     Indication: HYPERTENSION
  3. LANTUS [Concomitant]
     Indication: PRODUCT USED FOR UNKNOWN INDICATION
  4. DIOVAN [Concomitant]
     Indication: HYPERTENSION
  5. SYNTHROID [Concomitant]
     Indication: HYPOTHYROIDISM
  6. ZOCOR [Concomitant]
     Indication: BLOOD CHOLESTEROL
  7. HUMIRA [Suspect]
     Indication: PSORIASIS
     Dosage: 80MG INITIAL DOSE
     Dates: start: 20101108
  8. ASA [Concomitant]
     Indication: CARDIAC DISORDER
  9. NEXIUM [Concomitant]
     Indication: GASTROOESOPHAGEAL REFLUX DISEASE
  10. OXYCONTIN [Concomitant]
     Indication: ARTHRALGIA
  11. OXYCONTIN [Concomitant]
     Indication: MUSCULOSKELETAL PAIN
  12. SINGULAIR [Concomitant]
     Indication: PRODUCT USED FOR UNKNOWN INDICATION
  13. CELEBREX [Concomitant]
     Indication: ARTHRALGIA
  14. GEMFIBROZIL [Concomitant]
     Indication: PRODUCT USED FOR UNKNOWN INDICATION
  15. NOVOLOG [Concomitant]
     Indication: PRODUCT USED FOR UNKNOWN INDICATION
     Dosage: SLIDING SCALE DAILY
  16. THEOPHYLLINE 24 [Concomitant]
     Indication: PRODUCT USED FOR UNKNOWN INDICATION
  17. FUROSEMIDE [Concomitant]
     Indication: FLUID RETENTION
  18. O2 [Concomitant]
     Indication: PRODUCT USED FOR UNKNOWN INDICATION
     Dosage: 4L PER NASAL CANNULA 24HRS DAILY
     Route: 045
  19. SPIRIVA [Concomitant]
     Indication: PRODUCT USED FOR UNKNOWN INDICATION
  20. SPIRONOLACTONE [Concomitant]
     Indication: HYPERTENSION
  21. XOPENEX [Concomitant]
     Indication: PRODUCT USED FOR UNKNOWN INDICATION
     Route: 055
  22. MIRALAX [Concomitant]
     Indication: BOWEL MOVEMENT IRREGULARITY

REACTIONS (2)
  - INCORRECT DOSE ADMINISTERED [None]
  - WRONG TECHNIQUE IN DRUG USAGE PROCESS [None]
